FAERS Safety Report 16036125 (Version 2)
Quarter: 2019Q2

REPORT INFORMATION
  Report Type: Report from Study
  Country: ES (occurrence: ES)
  Receive Date: 20190305
  Receipt Date: 20190503
  Transmission Date: 20190711
  Serious: Yes (Death)
  Sender: FDA-Public Use
  Company Number: ES-ASTRAZENECA-2019SE35908

PATIENT
  Sex: Male
  Weight: 62 kg

DRUGS (2)
  1. MOVENTIG [Suspect]
     Active Substance: NALOXEGOL OXALATE
     Indication: CONSTIPATION
     Route: 048
     Dates: start: 20180327
  2. FENTANYL. [Concomitant]
     Active Substance: FENTANYL

REACTIONS (1)
  - Death [Fatal]

NARRATIVE: CASE EVENT DATE: 20180409
